FAERS Safety Report 13731805 (Version 3)
Quarter: 2017Q4

REPORT INFORMATION
  Report Type: Spontaneous
  Country: US (occurrence: US)
  Receive Date: 20170707
  Receipt Date: 20171013
  Transmission Date: 20180320
  Serious: No
  Sender: FDA-Public Use
  Company Number: US-PFIZER INC-2017291211

PATIENT
  Age: 77 Year
  Sex: Female
  Weight: 77.11 kg

DRUGS (1)
  1. PREMARIN [Suspect]
     Active Substance: ESTROGENS, CONJUGATED
     Indication: VAGINAL INFECTION
     Dosage: 0.5 G, UNK(USE IT 5 DAYS IN A ROW, AND THEN THE NEXT WEEK TO USE IT FOR 2 DAYS)
     Route: 067

REACTIONS (4)
  - Extra dose administered [Unknown]
  - Pollakiuria [Unknown]
  - Feeling abnormal [Unknown]
  - Vulvovaginal burning sensation [Unknown]

NARRATIVE: CASE EVENT DATE: 20170627
